FAERS Safety Report 21080385 (Version 3)
Quarter: 2022Q4

REPORT INFORMATION
  Report Type: Spontaneous
  Country: US (occurrence: US)
  Receive Date: 20220714
  Receipt Date: 20221017
  Transmission Date: 20230113
  Serious: No
  Sender: FDA-Public Use
  Company Number: US-BRISTOL-MYERS SQUIBB COMPANY-2022-073395

PATIENT
  Age: 79 Year
  Sex: Male

DRUGS (1)
  1. REVLIMID [Suspect]
     Active Substance: LENALIDOMIDE
     Indication: Plasma cell myeloma
     Dosage: 1 CAPSULE (10 MILLIGRAM) DAILY FOR 14 DAYS OF A 21 DAY CYCLE
     Route: 048

REACTIONS (5)
  - Muscle spasms [Unknown]
  - Localised infection [Unknown]
  - Arthralgia [Unknown]
  - Skin laceration [Unknown]
  - Off label use [Unknown]
